FAERS Safety Report 21208978 (Version 1)
Quarter: 2022Q3

REPORT INFORMATION
  Report Type: Report from Study
  Country: US (occurrence: US)
  Receive Date: 20220812
  Receipt Date: 20220812
  Transmission Date: 20221027
  Serious: Yes (Other)
  Sender: FDA-Public Use
  Company Number: US-ALLERGAN-2226117US

PATIENT
  Sex: Female
  Weight: 77.11 kg

DRUGS (7)
  1. BIMATOPROST [Suspect]
     Active Substance: BIMATOPROST
     Indication: Ocular hypertension
     Dosage: UNK
     Route: 047
     Dates: start: 2007
  2. BIMATOPROST [Suspect]
     Active Substance: BIMATOPROST
     Indication: Glaucoma
  3. COMBIGAN [Concomitant]
     Active Substance: BRIMONIDINE TARTRATE\TIMOLOL MALEATE
     Indication: Product used for unknown indication
     Dosage: UNK
  4. HYDROCHLOROTHIAZIDE [Concomitant]
     Active Substance: HYDROCHLOROTHIAZIDE
     Indication: Hypertension
     Dosage: 25 MG
  5. AMLODIPINE BESYLATE [Concomitant]
     Active Substance: AMLODIPINE BESYLATE
     Indication: Hypertension
     Dosage: 25 MG
  6. LOSARTAN [Concomitant]
     Active Substance: LOSARTAN
     Indication: Hypertension
     Dosage: 25 MG
  7. DORZOLAMIDE [Concomitant]
     Active Substance: DORZOLAMIDE
     Indication: Product used for unknown indication

REACTIONS (3)
  - Blindness [Not Recovered/Not Resolved]
  - Eye infection [Recovered/Resolved]
  - Photophobia [Unknown]

NARRATIVE: CASE EVENT DATE: 20210101
